FAERS Safety Report 5709528-5 (Version None)
Quarter: 2008Q2

REPORT INFORMATION
  Report Type: 
  Country: None (occurrence: None)
  Receive Date: 20080418
  Receipt Date: 20080409
  Transmission Date: 20081010
  Serious: Yes (Hospitalization, Other)
  Sender: FDA-Public Use
  Company Number: US-NOVOPROD-273052

PATIENT
  Age: 69 Year
  Sex: Female
  Weight: 72.562 kg

DRUGS (4)
  1. ACTIVELLA [Suspect]
     Indication: ATROPHIC VULVOVAGINITIS
     Dosage: 1 TAB, QD
     Route: 048
     Dates: start: 20020918
  2. ACTIVELLA 0.5/0.1 MG [Suspect]
     Indication: ATROPHIC VULVOVAGINITIS
  3. ENTEX                              /00567601/ [Concomitant]
     Indication: DRUG USE FOR UNKNOWN INDICATION
  4. MOTRIN [Concomitant]
     Indication: DRUG USE FOR UNKNOWN INDICATION

REACTIONS (1)
  - ENDOMETRIAL CANCER [None]
